FAERS Safety Report 9284198 (Version 3)
Quarter: 2013Q3

REPORT INFORMATION
  Report Type: Spontaneous
  Country: FR (occurrence: FR)
  Receive Date: 20130510
  Receipt Date: 20130726
  Transmission Date: 20140515
  Serious: Yes (Life-Threatening, Hospitalization)
  Sender: FDA-Public Use
  Company Number: FR-ASTRAZENECA-2013SE31652

PATIENT
  Age: 9982 Day
  Sex: Female

DRUGS (10)
  1. INEXIUM [Suspect]
     Route: 048
     Dates: start: 20130219, end: 20130304
  2. PLAQUENIL [Suspect]
     Indication: STILL^S DISEASE ADULT ONSET
     Route: 048
     Dates: start: 20130219, end: 20130304
  3. KINERET [Suspect]
     Indication: STILL^S DISEASE ADULT ONSET
     Route: 048
     Dates: start: 201211, end: 20130304
  4. KINERET [Suspect]
     Indication: STILL^S DISEASE ADULT ONSET
     Route: 048
     Dates: start: 20130412
  5. CELEBREX [Suspect]
     Indication: STILL^S DISEASE ADULT ONSET
     Route: 048
     Dates: start: 20130219, end: 20130304
  6. TERCIAN [Suspect]
     Route: 048
     Dates: start: 20130219, end: 20130304
  7. OROCAL D3 [Concomitant]
     Route: 048
     Dates: start: 20130219
  8. LYSANXIA [Concomitant]
     Route: 048
  9. PARACETAMOL [Concomitant]
     Dosage: LONG LASTING TREATMENT
     Route: 048
  10. CORTANCYL [Concomitant]
     Route: 048
     Dates: start: 201210

REACTIONS (3)
  - Histiocytosis haematophagic [Unknown]
  - Leukopenia [Recovered/Resolved]
  - Agranulocytosis [Recovered/Resolved]
